FAERS Safety Report 7963374-0 (Version None)
Quarter: 2011Q4

REPORT INFORMATION
  Report Type: 
  Country: None (occurrence: None)
  Receive Date: 20111205
  Receipt Date: 20111123
  Transmission Date: 20120403
  Serious: Yes (Other)
  Sender: FDA-Public Use
  Company Number: DKLU1074733

PATIENT
  Age: 19 Year
  Sex: Male

DRUGS (4)
  1. SABRIL [Suspect]
     Indication: TUBEROUS SCLEROSIS
     Dosage: 500 MG MILLIGRAM(S), 2 IN 1 D, ORAL 500 MG MILLIGRAM(S), 2 IN 1 D, ORAL
     Route: 048
     Dates: start: 20040101, end: 20090801
  2. SABRIL [Suspect]
     Indication: CONVULSION
     Dosage: 500 MG MILLIGRAM(S), 2 IN 1 D, ORAL 500 MG MILLIGRAM(S), 2 IN 1 D, ORAL
     Route: 048
     Dates: start: 20040101, end: 20090801
  3. SABRIL [Suspect]
     Indication: TUBEROUS SCLEROSIS
     Dosage: 500 MG MILLIGRAM(S), 2 IN 1 D, ORAL 500 MG MILLIGRAM(S), 2 IN 1 D, ORAL
     Route: 048
     Dates: start: 20090801
  4. SABRIL [Suspect]
     Indication: CONVULSION
     Dosage: 500 MG MILLIGRAM(S), 2 IN 1 D, ORAL 500 MG MILLIGRAM(S), 2 IN 1 D, ORAL
     Route: 048
     Dates: start: 20090801

REACTIONS (1)
  - RETINAL DISORDER [None]
